FAERS Safety Report 9479762 (Version 1)
Quarter: 2013Q3

REPORT INFORMATION
  Report Type: Spontaneous
  Country: US (occurrence: US)
  Receive Date: 20130828
  Receipt Date: 20130828
  Transmission Date: 20140515
  Serious: Yes (Other)
  Sender: FDA-Public Use
  Company Number: US-AMGEN-KDL049110

PATIENT
  Age: 45 Year
  Sex: Female

DRUGS (1)
  1. ENBREL [Suspect]
     Indication: PSORIASIS
     Dosage: 25 MG, 2 TIMES/WK
     Route: 058
     Dates: start: 20030611, end: 20030711

REACTIONS (5)
  - West Nile viral infection [Unknown]
  - Rash pruritic [Unknown]
  - Pain in extremity [Unknown]
  - Psoriasis [Unknown]
  - Condition aggravated [Unknown]
